FAERS Safety Report 8132726-0 (Version None)
Quarter: 2012Q1

REPORT INFORMATION
  Report Type: 
  Country: None (occurrence: None)
  Receive Date: 20120213
  Receipt Date: 20120207
  Transmission Date: 20120608
  Serious: Yes (Other)
  Sender: FDA-Public Use
  Company Number: US-PFIZER INC-2012034728

PATIENT
  Sex: Female
  Weight: 52.154 kg

DRUGS (4)
  1. LEVOTHYROXINE SODIUM [Suspect]
     Indication: HYPERTHYROIDISM
  2. LEVOXYL [Suspect]
     Indication: HYPERTHYROIDISM
  3. LEVOXYL [Suspect]
     Indication: OFF LABEL USE
     Dosage: 0.125 MG, DAILY
     Dates: start: 20010101
  4. LEVOTHYROXINE SODIUM [Suspect]
     Indication: OFF LABEL USE
     Dosage: UNK

REACTIONS (2)
  - HYPOTENSION [None]
  - DRUG EFFECT DECREASED [None]
